FAERS Safety Report 7510175-3 (Version None)
Quarter: 2011Q2

REPORT INFORMATION
  Report Type: 
  Country: None (occurrence: None)
  Receive Date: 20110527
  Receipt Date: 20110523
  Transmission Date: 20111010
  Serious: Yes (Hospitalization, Other)
  Sender: FDA-Public Use
  Company Number: US-ABBOTT-11P-163-0728302-00

PATIENT
  Sex: Female
  Weight: 63.56 kg

DRUGS (4)
  1. BYETTA [Concomitant]
     Indication: DIABETES MELLITUS
  2. LEVOTHYROXINE SODIUM [Concomitant]
     Indication: HYPOTHYROIDISM
  3. EFFEXOR [Concomitant]
     Indication: PRODUCT USED FOR UNKNOWN INDICATION
  4. HUMIRA [Suspect]
     Indication: PSORIATIC ARTHROPATHY
     Dates: start: 20110401

REACTIONS (6)
  - SKIN HAEMORRHAGE [None]
  - STAPHYLOCOCCAL INFECTION [None]
  - ARTHRITIS [None]
  - ARTHRALGIA [None]
  - SKIN PLAQUE [None]
  - BLOOD TEST ABNORMAL [None]
